FAERS Safety Report 15659406 (Version 2)
Quarter: 2018Q4

REPORT INFORMATION
  Report Type: Spontaneous
  Country: FR (occurrence: FR)
  Receive Date: 20181127
  Receipt Date: 20181127
  Transmission Date: 20190205
  Serious: Yes (Life-Threatening, Hospitalization)
  Sender: FDA-Public Use
  Company Number: FR-TEVA-2018-FR-978620

PATIENT
  Age: 61 Year
  Sex: Female

DRUGS (2)
  1. AMOXICILLINE [Suspect]
     Active Substance: AMOXICILLIN
     Indication: INFECTION
     Route: 048
     Dates: start: 20180720
  2. CHIBROXINE 0,3 POUR CENT, COLLYRE EN SOLUTION [Suspect]
     Active Substance: NORFLOXACIN
     Route: 065
     Dates: start: 20180720

REACTIONS (2)
  - Respiratory distress [Unknown]
  - Eyelid oedema [Recovering/Resolving]

NARRATIVE: CASE EVENT DATE: 20180721
